FAERS Safety Report 21198402 (Version 2)
Quarter: 2023Q1

REPORT INFORMATION
  Report Type: Spontaneous
  Country: US (occurrence: US)
  Receive Date: 20220811
  Receipt Date: 20230324
  Transmission Date: 20230418
  Serious: No
  Sender: FDA-Public Use
  Company Number: US-SANOFI-01222010

PATIENT
  Age: 3 Year
  Sex: Male

DRUGS (1)
  1. LUMIZYME [Suspect]
     Active Substance: ALGLUCOSIDASE ALFA
     Indication: Glycogen storage disease type II
     Dosage: 900 MG, QW
     Route: 041
     Dates: start: 20190326

REACTIONS (2)
  - Malaise [Not Recovered/Not Resolved]
  - COVID-19 [Unknown]
